FAERS Safety Report 25234465 (Version 1)
Quarter: 2025Q2

REPORT INFORMATION
  Report Type: Spontaneous
  Country: IT (occurrence: IT)
  Receive Date: 20250424
  Receipt Date: 20250424
  Transmission Date: 20250717
  Serious: Yes (Other)
  Sender: AUROBINDO
  Company Number: IT-ABBVIE-6211020

PATIENT
  Sex: Male

DRUGS (21)
  1. AZACITIDINE [Suspect]
     Active Substance: AZACITIDINE
     Indication: Acute myeloid leukaemia
     Route: 065
     Dates: start: 20240617, end: 20240625
  2. AZACITIDINE [Suspect]
     Active Substance: AZACITIDINE
     Route: 065
     Dates: start: 20240826, end: 20240902
  3. AZACITIDINE [Suspect]
     Active Substance: AZACITIDINE
     Route: 065
     Dates: start: 20241104, end: 20241112
  4. VENETOCLAX [Suspect]
     Active Substance: VENETOCLAX
     Indication: Acute myeloid leukaemia
     Route: 048
     Dates: start: 20240613, end: 20240613
  5. VENETOCLAX [Suspect]
     Active Substance: VENETOCLAX
     Route: 048
     Dates: start: 20240614, end: 20240614
  6. VENETOCLAX [Suspect]
     Active Substance: VENETOCLAX
     Route: 048
     Dates: start: 20240615, end: 20240628
  7. VENETOCLAX [Suspect]
     Active Substance: VENETOCLAX
     Route: 048
     Dates: start: 20240629, end: 20240712
  8. VENETOCLAX [Suspect]
     Active Substance: VENETOCLAX
     Route: 048
     Dates: start: 20240826, end: 20240912
  9. VENETOCLAX [Suspect]
     Active Substance: VENETOCLAX
     Route: 048
     Dates: start: 20241104, end: 20241114
  10. ACYCLOVIR [Concomitant]
     Active Substance: ACYCLOVIR
     Indication: Antifungal treatment
     Dosage: 400 MILLIGRAM, EVERY OTHER DAY
     Route: 048
     Dates: start: 20240719
  11. FILGRASTIM [Concomitant]
     Active Substance: FILGRASTIM
     Indication: Neutropenia
     Route: 065
     Dates: start: 20240712, end: 20240712
  12. FILGRASTIM [Concomitant]
     Active Substance: FILGRASTIM
     Route: 065
     Dates: start: 20240716, end: 20240716
  13. FILGRASTIM [Concomitant]
     Active Substance: FILGRASTIM
     Route: 065
     Dates: start: 20240719, end: 20240719
  14. FILGRASTIM [Concomitant]
     Active Substance: FILGRASTIM
     Route: 065
     Dates: start: 20240721, end: 20240721
  15. FILGRASTIM [Concomitant]
     Active Substance: FILGRASTIM
     Route: 065
     Dates: start: 20240723, end: 20240723
  16. FILGRASTIM [Concomitant]
     Active Substance: FILGRASTIM
     Route: 065
     Dates: start: 20240725, end: 20240729
  17. FILGRASTIM [Concomitant]
     Active Substance: FILGRASTIM
     Route: 065
     Dates: start: 20240801, end: 20240801
  18. POLYETHYLENE GLYCOLS [Concomitant]
     Active Substance: POLYETHYLENE GLYCOLS
     Indication: Laxative supportive care
     Route: 048
     Dates: start: 20240604, end: 20240716
  19. LATANOPROST [Concomitant]
     Active Substance: LATANOPROST
     Indication: Eye disorder
     Dosage: 1 DROP, ONCE A DAY
     Route: 065
     Dates: start: 20240604
  20. DIHYDROCODEINE [Concomitant]
     Active Substance: DIHYDROCODEINE
     Indication: Cough
     Route: 048
     Dates: start: 20240604, end: 20240624
  21. COVID-19 vaccine [Concomitant]
     Indication: Product used for unknown indication
     Route: 065
     Dates: end: 202103

REACTIONS (4)
  - Neutropenia [Recovering/Resolving]
  - Congenital aplasia [Recovered/Resolved]
  - Enterococcal infection [Recovered/Resolved]
  - Anaemia [Recovered/Resolved]

NARRATIVE: CASE EVENT DATE: 20240807
